FAERS Safety Report 6543521-8 (Version None)
Quarter: 2010Q1

REPORT INFORMATION
  Report Type: 
  Country: None (occurrence: None)
  Receive Date: 20100120
  Receipt Date: 20100118
  Transmission Date: 20100710
  Serious: Yes (Hospitalization)
  Sender: FDA-Public Use
  Company Number: B0626873A

PATIENT
  Sex: Female
  Weight: 53 kg

DRUGS (5)
  1. LAPATINIB [Suspect]
     Indication: BREAST CANCER
     Dosage: 1250MG PER DAY
     Route: 048
     Dates: start: 20091208
  2. MYOCET [Suspect]
     Indication: BREAST CANCER
     Dosage: 60MG EVERY 3 WEEKS
     Route: 042
     Dates: start: 20091208
  3. PACLITAXEL [Suspect]
     Indication: BREAST CANCER
     Dosage: 175MG EVERY 3 WEEKS
     Route: 042
     Dates: start: 20091208
  4. LOPERAMIDE [Concomitant]
     Dosage: 20MG PER DAY
     Route: 048
     Dates: start: 20100115, end: 20100116
  5. MCP [Concomitant]
     Indication: NAUSEA
     Route: 048
     Dates: start: 20100115

REACTIONS (1)
  - FEBRILE NEUTROPENIA [None]
